FAERS Safety Report 10149445 (Version 2)
Quarter: 2014Q2

REPORT INFORMATION
  Report Type: Spontaneous
  Country: US (occurrence: US)
  Receive Date: 20140502
  Receipt Date: 20140515
  Transmission Date: 20141212
  Serious: Yes (Other)
  Sender: FDA-Public Use
  Company Number: US-009507513-1404USA013871

PATIENT
  Sex: Female

DRUGS (9)
  1. PRINIVIL [Suspect]
     Indication: BLOOD PRESSURE
     Dosage: 20 MG, QD
     Route: 048
     Dates: start: 2008, end: 2012
  2. PRINZIDE [Suspect]
     Dosage: UNK
     Route: 048
  3. TOPROL XL TABLETS [Suspect]
     Dosage: UNK
     Dates: end: 2014
  4. SYNTHROID [Suspect]
     Dosage: UNK
     Dates: end: 2014
  5. XARELTO [Concomitant]
     Dosage: UNK
     Dates: end: 2014
  6. ZOLOFT [Concomitant]
     Dosage: UNK
     Dates: end: 2014
  7. NEXIUM [Concomitant]
     Dosage: UNK
     Route: 048
     Dates: end: 2014
  8. PRAVACHOL [Concomitant]
     Dosage: UNK
     Dates: end: 2014
  9. AMLODIPINE [Concomitant]
     Dosage: UNK
     Dates: end: 2014

REACTIONS (8)
  - Loss of consciousness [Unknown]
  - Convulsion [Unknown]
  - Pollakiuria [Unknown]
  - Eye swelling [Unknown]
  - Atrial fibrillation [Unknown]
  - Drug hypersensitivity [Unknown]
  - Pruritus [Recovered/Resolved]
  - Pruritus [Not Recovered/Not Resolved]
